FAERS Safety Report 8605556-0 (Version None)
Quarter: 2012Q3

REPORT INFORMATION
  Report Type: 
  Country: None (occurrence: None)
  Receive Date: 20120820
  Receipt Date: 20120815
  Transmission Date: 20120928
  Serious: No
  Sender: FDA-Public Use
  Company Number: US-TEVA-354192USA

PATIENT
  Sex: Male
  Weight: 61.29 kg

DRUGS (3)
  1. MIRAPEX [Concomitant]
     Indication: PARKINSON'S DISEASE
     Route: 048
  2. CARBIDOPA + LEVODOPA [Concomitant]
     Indication: PARKINSON'S DISEASE
     Route: 047
  3. AZILECT [Suspect]
     Indication: PARKINSON'S DISEASE
     Dosage: 1 MILLIGRAM DAILY;
     Route: 048

REACTIONS (1)
  - WEIGHT DECREASED [None]
